FAERS Safety Report 8029489-6 (Version None)
Quarter: 2012Q1

REPORT INFORMATION
  Report Type: 
  Country: None (occurrence: None)
  Receive Date: 20120109
  Receipt Date: 20120104
  Transmission Date: 20120608
  Serious: Yes (Other)
  Sender: FDA-Public Use
  Company Number: US-BRISTOL-MYERS SQUIBB COMPANY-16323156

PATIENT
  Age: 54 Year
  Sex: Male

DRUGS (10)
  1. CALCITRIOL [Concomitant]
     Indication: AGITATION
     Route: 048
  2. MULTI-VITAMIN [Concomitant]
     Indication: SUPPLEMENTATION THERAPY
     Route: 048
  3. ZOFRAN [Concomitant]
     Indication: NAUSEA
     Route: 048
  4. ZOFRAN [Concomitant]
     Indication: VOMITING
     Route: 048
  5. DASATINIB [Suspect]
     Indication: NON-SMALL CELL LUNG CANCER
     Dosage: 20MG LOT NO:1G67348 50MG LOT NO:1A71387 INTERRUPTED ON 27DEC2011
     Route: 048
     Dates: start: 20111209
  6. LEVOTHYROXINE SODIUM [Concomitant]
     Indication: HYPOTHYROIDISM
     Route: 048
  7. OXYCODONE HCL AND ACETAMINOPHEN [Concomitant]
     Indication: PAIN
     Dosage: 1DF:1 TABS(5/325 MG) EVERY 8 HRS PRN
     Route: 048
  8. AMLODIPINE BESYLATE [Concomitant]
     Indication: HYPERTENSION
     Route: 048
  9. LISINOPRIL [Concomitant]
     Indication: HYPERTENSION
     Route: 048
  10. TARCEVA [Suspect]
     Indication: NON-SMALL CELL LUNG CANCER
     Dosage: DRUG INTERRUPTED ON 27DEC2011
     Route: 048
     Dates: start: 20111209

REACTIONS (3)
  - VOMITING [None]
  - ABDOMINAL PAIN [None]
  - DEHYDRATION [None]
